FAERS Safety Report 8327214-2 (Version None)
Quarter: 2012Q2

REPORT INFORMATION
  Report Type: 
  Country: None (occurrence: None)
  Receive Date: 20120501
  Receipt Date: 20120402
  Transmission Date: 20120825
  Serious: Yes (Other)
  Sender: FDA-Public Use
  Company Number: AT-BAXTER-2012BH007169

PATIENT
  Sex: Male

DRUGS (11)
  1. POTASSIUM CHLORIDE_POTASSIUM CHLORIDE 200.00 MEQ/L_SOLUTION FOR INFUSI [Suspect]
     Indication: PARENTERAL NUTRITION
     Route: 042
  2. LORAZEPAM [Concomitant]
  3. LEVOMEPROMAZINE [Concomitant]
     Route: 065
  4. NEUROCIL [Concomitant]
  5. ZENTROOLIMEL 5,7 % MIT ELEKTROLYTEN  - EMULSION ZUR INFUSION [Suspect]
     Indication: OFF LABEL USE
  6. CERNEVIT - PULVER ZUR HERSTELLUNG EINER INFUSIONSLOSUNG [Suspect]
     Indication: PARENTERAL NUTRITION
     Route: 042
  7. ZENTROOLIMEL 5,7 % MIT ELEKTROLYTEN  - EMULSION ZUR INFUSION [Suspect]
     Indication: PARENTERAL NUTRITION
     Route: 042
  8. PANTOPRAZOLE [Concomitant]
     Indication: GASTRITIS PROPHYLAXIS
     Route: 065
  9. ADDEL N_N_CONCENTRATE FOR SOLUTION FOR INFUSION_AMPULE, PLASTIC [Suspect]
     Indication: PARENTERAL NUTRITION
     Route: 042
  10. JONOSTERIL [Suspect]
     Indication: PARENTERAL NUTRITION
     Route: 042
  11. NOVALGIN [Concomitant]

REACTIONS (9)
  - HYPERVENTILATION [None]
  - INFECTIOUS PERITONITIS [None]
  - ENTEROCUTANEOUS FISTULA [None]
  - TETANY [None]
  - WRONG TECHNIQUE IN DRUG USAGE PROCESS [None]
  - MUSCLE SPASMS [None]
  - PAIN [None]
  - PARAESTHESIA [None]
  - CEREBROVASCULAR ACCIDENT [None]
